FAERS Safety Report 5804825-7 (Version None)
Quarter: 2008Q3

REPORT INFORMATION
  Report Type: 
  Country: None (occurrence: None)
  Receive Date: 20080709
  Receipt Date: 20080627
  Transmission Date: 20090109
  Serious: Yes (Death)
  Sender: FDA-Public Use
  Company Number: JP-ELI_LILLY_AND_COMPANY-JP200805002000

PATIENT
  Sex: Female
  Weight: 45 kg

DRUGS (13)
  1. EVISTA [Suspect]
     Indication: OSTEOPOROSIS POSTMENOPAUSAL
     Dosage: 60 MG, DAILY (1/D)
     Route: 048
     Dates: start: 20041116
  2. MEDROL [Concomitant]
     Indication: RHEUMATOID ARTHRITIS
     Dosage: 2 MG, DAILY (1/D)
     Route: 048
     Dates: start: 20030213
  3. RIMATIL [Concomitant]
     Indication: RHEUMATOID ARTHRITIS
     Dosage: 100 MG, DAILY (1/D)
     Route: 048
     Dates: start: 20030213
  4. ELCITONIN [Concomitant]
     Dosage: 20 IU, OTHER
     Route: 065
     Dates: start: 20030508
  5. CLINORIL [Concomitant]
     Dosage: 1 D/F, 3/D
     Route: 048
     Dates: start: 20030213, end: 20050927
  6. CLINORIL [Concomitant]
     Dosage: 1 D/F, 2/D
     Route: 048
     Dates: start: 20050928, end: 20060210
  7. CLINORIL [Concomitant]
     Dosage: 1 D/F, DAILY (1/D)
     Route: 048
     Dates: start: 20060211
  8. MUCOSTA [Concomitant]
     Indication: PROPHYLAXIS
     Dosage: 1 D/F, 3/D
     Route: 048
     Dates: start: 20030214, end: 20060309
  9. MUCOSTA [Concomitant]
     Dosage: 1 D/F, DAILY (1/D)
     Route: 048
     Dates: start: 20060310
  10. TAKEPRON [Concomitant]
     Indication: PROPHYLAXIS
     Dosage: 30 MG, DAILY (1/D)
     Route: 048
     Dates: start: 20030214, end: 20060210
  11. TAKEPRON [Concomitant]
     Dosage: 15 MG, DAILY (1/D)
     Route: 048
     Dates: start: 20060211
  12. ONEALFA [Concomitant]
     Indication: OSTEOPOROSIS POSTMENOPAUSAL
     Dosage: 0.5 UG, DAILY (1/D)
     Route: 048
     Dates: start: 20041116
  13. CALCIUM LACTATE [Concomitant]
     Indication: OSTEOPOROSIS POSTMENOPAUSAL
     Dosage: 1 G, DAILY (1/D)
     Route: 048
     Dates: start: 20041116

REACTIONS (2)
  - AORTIC DISSECTION [None]
  - URINARY TRACT INFECTION [None]
